FAERS Safety Report 10600837 (Version 1)
Quarter: 2014Q4

REPORT INFORMATION
  Report Type: Other
  Country: DE (occurrence: DE)
  Receive Date: 20141124
  Receipt Date: 20141124
  Transmission Date: 20150529
  Serious: Yes (Other)
  Sender: FDA-Public Use
  Company Number: DE-LUPIN PHARMACEUTICALS INC.-E2B_00002743

PATIENT
  Age: 34 Year
  Sex: Female
  Weight: 63 kg

DRUGS (11)
  1. MAXALT [Concomitant]
     Active Substance: RIZATRIPTAN BENZOATE
     Indication: MIGRAINE
     Dosage: 10 MG/DAY OR 20 MG/D AS REQUIRED
     Route: 048
     Dates: start: 20140510, end: 20140703
  2. ASS 100 [Concomitant]
     Active Substance: ASPIRIN
     Indication: MIGRAINE
     Route: 048
     Dates: start: 20140525, end: 20140525
  3. FOLIO FORTE [Concomitant]
     Active Substance: FOLIC ACID\VITAMINS
     Indication: PROPHYLAXIS OF NEURAL TUBE DEFECT
     Route: 048
  4. DORMICUM [Concomitant]
     Active Substance: MIDAZOLAM\MIDAZOLAM HYDROCHLORIDE
     Indication: MIGRAINE
     Route: 042
     Dates: start: 20140510, end: 20140514
  5. OMEPRAZOL [Concomitant]
     Active Substance: OMEPRAZOLE
     Indication: GASTRITIS PROPHYLAXIS
     Route: 048
     Dates: start: 20140506, end: 20140818
  6. TOPIRAMATE. [Suspect]
     Active Substance: TOPIRAMATE
     Indication: MIGRAINE PROPHYLAXIS
     Dosage: 150 MG/DAY OR DOSAGE BETWEEN 150 MG/DAY AND 25 MG/DAY
     Route: 048
     Dates: start: 20140515, end: 20140905
  7. PERFALGAN [Concomitant]
     Active Substance: ACETAMINOPHEN
     Indication: MIGRAINE
     Route: 042
     Dates: start: 20140510, end: 20140514
  8. NOVALGIN [Concomitant]
     Active Substance: METAMIZOLE SODIUM
     Indication: MIGRAINE
     Route: 042
     Dates: start: 20140510, end: 20140514
  9. SUMATRIPTAN. [Concomitant]
     Active Substance: SUMATRIPTAN
     Indication: MIGRAINE
     Route: 048
     Dates: start: 20140701, end: 20140730
  10. RELPAX [Concomitant]
     Active Substance: ELETRIPTAN HYDROBROMIDE
     Indication: MIGRAINE
     Route: 048
     Dates: start: 20140528, end: 20140612
  11. ALLEGRO 2.5 [Concomitant]
     Indication: MIGRAINE
     Route: 048
     Dates: start: 20140506, end: 20140527

REACTIONS (2)
  - Exposure during pregnancy [Unknown]
  - Abortion missed [Unknown]
